FAERS Safety Report 5153155-8 (Version None)
Quarter: 2006Q4

REPORT INFORMATION
  Report Type: 
  Country: None (occurrence: None)
  Receive Date: 20061117
  Receipt Date: 20061004
  Transmission Date: 20070319
  Serious: Yes (Life-Threatening)
  Sender: FDA-Public Use
  Company Number: 2006AP04613

PATIENT
  Age: 19123 Day
  Sex: Female
  Weight: 44.6 kg

DRUGS (4)
  1. ARIMIDEX [Suspect]
     Indication: BREAST CANCER RECURRENT
     Route: 048
     Dates: start: 20060105, end: 20060922
  2. ARIMIDEX [Suspect]
     Route: 048
     Dates: start: 20061002, end: 20061006
  3. NOLVADEX [Suspect]
     Indication: BREAST CANCER
     Route: 048
  4. LEUPLIN [Concomitant]
     Indication: BREAST CANCER RECURRENT
     Route: 058
     Dates: start: 20051215, end: 20060824

REACTIONS (2)
  - NEUTROPENIA [None]
  - PYREXIA [None]
